FAERS Safety Report 7565675-7 (Version None)
Quarter: 2011Q2

REPORT INFORMATION
  Report Type: 
  Country: None (occurrence: None)
  Receive Date: 20110623
  Receipt Date: 20100525
  Transmission Date: 20111010
  Serious: No
  Sender: FDA-Public Use
  Company Number: US-MUTUAL PHARMACEUTICAL COMPANY, INC.-1-22772403

PATIENT
  Sex: Female
  Weight: 76.726 kg

DRUGS (22)
  1. REGLAN [Suspect]
     Route: 048
     Dates: start: 20081001, end: 20081201
  2. METOCLOPRAMIDE [Suspect]
     Route: 048
     Dates: start: 20081017
  3. PAROXETINE HCL [Concomitant]
     Indication: PRODUCT USED FOR UNKNOWN INDICATION
     Route: 065
  4. HYDROCODONE/APAP 7.5 MG/ 500 MG TABS [Concomitant]
     Indication: PRODUCT USED FOR UNKNOWN INDICATION
     Route: 048
  5. CYCLOBENZAPRINE 10MG TABLETS [Concomitant]
     Indication: MUSCLE SPASMS
     Route: 048
  6. IMIPRAMINE [Concomitant]
     Indication: HEADACHE
     Route: 048
  7. METHYLPREDNISOLONE 4 MG DOSPAK [Concomitant]
     Indication: PRODUCT USED FOR UNKNOWN INDICATION
     Route: 065
  8. REGLAN [Suspect]
     Route: 048
     Dates: start: 20080930, end: 20081103
  9. METOCLOPRAMIDE [Suspect]
     Indication: ILEUS
     Route: 048
     Dates: start: 20021227
  10. LEXAPRO 20 MG TABLET [Concomitant]
     Indication: DEPRESSION
     Route: 048
  11. AMOXICILLIN [Concomitant]
     Indication: PRODUCT USED FOR UNKNOWN INDICATION
     Route: 048
  12. OLANZAPINE [Concomitant]
     Indication: PRODUCT USED FOR UNKNOWN INDICATION
     Route: 065
  13. METOCLOPRAMIDE HYDROCHLORIDE [Suspect]
     Indication: PRODUCT USED FOR UNKNOWN INDICATION
     Route: 048
     Dates: start: 20040214, end: 20041101
  14. METOCLOPRAMIDE [Suspect]
     Route: 048
     Dates: start: 20080124
  15. PROMETHAZINE [Concomitant]
     Indication: PRODUCT USED FOR UNKNOWN INDICATION
     Route: 065
  16. QUETIAPINE [Concomitant]
     Indication: PRODUCT USED FOR UNKNOWN INDICATION
     Route: 065
  17. REGLAN [Suspect]
     Indication: PRODUCT USED FOR UNKNOWN INDICATION
     Route: 048
     Dates: start: 20060227, end: 20060404
  18. METOCLOPRAMIDE [Suspect]
     Route: 048
     Dates: start: 20090225, end: 20090401
  19. SERTRALINE HYDROCHLORIDE [Concomitant]
     Indication: PRODUCT USED FOR UNKNOWN INDICATION
     Route: 065
  20. RANITIDINE 150 MG CAPSULES [Concomitant]
     Indication: GASTRIC DISORDER
     Route: 048
  21. PROPOXYPHENE NAPSYLATE W/ ACETAMINOPHEN [Concomitant]
     Indication: PRODUCT USED FOR UNKNOWN INDICATION
     Route: 048
  22. CARISOPRODOL [Concomitant]
     Indication: PRODUCT USED FOR UNKNOWN INDICATION
     Route: 065

REACTIONS (1)
  - TARDIVE DYSKINESIA [None]
